FAERS Safety Report 14870417 (Version 1)
Quarter: 2018Q2

REPORT INFORMATION
  Report Type: Spontaneous
  Country: GB (occurrence: GB)
  Receive Date: 20180509
  Receipt Date: 20180509
  Transmission Date: 20180711
  Serious: Yes (Other)
  Sender: FDA-Public Use
  Company Number: GB-TEVA-2018-GB-889659

PATIENT
  Age: 75 Year
  Sex: Female
  Weight: 78.92 kg

DRUGS (1)
  1. DOXYCYCLINE HYCLATE. [Suspect]
     Active Substance: DOXYCYCLINE HYCLATE
     Indication: UVEITIS
     Route: 048
     Dates: start: 20180226, end: 20180302

REACTIONS (4)
  - Salivary gland pain [Recovering/Resolving]
  - Pruritus [Recovering/Resolving]
  - Lip swelling [Unknown]
  - Headache [Recovering/Resolving]

NARRATIVE: CASE EVENT DATE: 20180302
